FAERS Safety Report 5974321-5 (Version None)
Quarter: 2008Q4

REPORT INFORMATION
  Report Type: 
  Country: None (occurrence: None)
  Receive Date: 20081201
  Receipt Date: 20081120
  Transmission Date: 20090506
  Serious: Yes (Other)
  Sender: FDA-Public Use
  Company Number: US-PFIZER INC-2008090816

PATIENT
  Sex: Male
  Weight: 96.6 kg

DRUGS (4)
  1. CHANTIX [Suspect]
     Indication: SMOKING CESSATION THERAPY
     Route: 048
     Dates: start: 20080801, end: 20081016
  2. ELAVIL [Concomitant]
     Indication: BACK PAIN
  3. SOMA [Concomitant]
  4. CANNABIS [Concomitant]

REACTIONS (11)
  - AGGRESSION [None]
  - ANOREXIA [None]
  - FEELING ABNORMAL [None]
  - HYPOMANIA [None]
  - INSOMNIA [None]
  - LOGORRHOEA [None]
  - MALAISE [None]
  - MANIA [None]
  - VIOLENCE-RELATED SYMPTOM [None]
  - VOMITING [None]
  - WEIGHT DECREASED [None]
